FAERS Safety Report 20811211 (Version 1)
Quarter: 2022Q2

REPORT INFORMATION
  Report Type: Spontaneous
  Country: PE (occurrence: PE)
  Receive Date: 20220510
  Receipt Date: 20220510
  Transmission Date: 20220721
  Serious: Yes (Other)
  Sender: FDA-Public Use
  Company Number: PE-009507513-2204PER001940

PATIENT
  Age: 57 Year
  Sex: Male

DRUGS (5)
  1. BRIDION [Suspect]
     Active Substance: SUGAMMADEX
     Indication: Neuromuscular blockade reversal
     Dosage: 100 MG
     Route: 042
     Dates: start: 202204
  2. BRIDION [Suspect]
     Active Substance: SUGAMMADEX
     Dosage: 100 MG, AFTER 20 MINUTES, SECOND OCCASION
     Route: 042
     Dates: start: 202204
  3. ROCURONIUM BROMIDE [Suspect]
     Active Substance: ROCURONIUM BROMIDE
     Indication: Neuromuscular blockade
     Dosage: UNK
     Dates: start: 202204
  4. TRANEXAMIC ACID [Concomitant]
     Active Substance: TRANEXAMIC ACID
  5. MORPHINE [Concomitant]
     Active Substance: MORPHINE

REACTIONS (3)
  - Endotracheal intubation complication [Unknown]
  - Carbon dioxide increased [Unknown]
  - Bronchospasm [Recovered/Resolved]

NARRATIVE: CASE EVENT DATE: 20220401
